FAERS Safety Report 8920495 (Version 1)
Quarter: 2012Q4

REPORT INFORMATION
  Report Type: Report from Study
  Country: BG (occurrence: BG)
  Receive Date: 20121121
  Receipt Date: 20121121
  Transmission Date: 20130627
  Serious: Yes (Death)
  Sender: FDA-Public Use
  Company Number: BG-ABBOTT-12P-022-1009305-00

PATIENT
  Age: 76 Year
  Sex: Female
  Weight: 65 kg

DRUGS (8)
  1. ZEMPLAR [Suspect]
     Indication: RENAL FAILURE CHRONIC
     Dosage: 7x1mcg per week, daily dose 1 mcg
     Route: 048
     Dates: start: 20120529, end: 20121111
  2. ZEMPLAR [Suspect]
     Indication: HYPERPARATHYROIDISM SECONDARY
  3. ALISKIREN [Concomitant]
     Indication: HYPERTENSION
     Route: 048
     Dates: start: 2011
  4. CARVEDILOL [Concomitant]
     Indication: HYPERTENSION
     Route: 048
     Dates: start: 2009
  5. TORASEMID [Concomitant]
     Indication: HYPERTENSION
     Route: 048
     Dates: start: 2012
  6. ATORVASTATIN [Concomitant]
     Indication: DYSLIPIDAEMIA
     Route: 048
     Dates: start: 2011
  7. DARBEPOETIN ALFA [Concomitant]
     Indication: ANAEMIA
     Route: 048
     Dates: start: 201204
  8. RISPERIDON [Concomitant]
     Indication: PRODUCT USED FOR UNKNOWN INDICATION
     Route: 048
     Dates: start: 201203

REACTIONS (2)
  - Acute respiratory failure [Fatal]
  - Cardiac failure acute [Fatal]
